FAERS Safety Report 8936063 (Version 2)
Quarter: 2013Q1

REPORT INFORMATION
  Report Type: Spontaneous
  Country: US (occurrence: None)
  Receive Date: 20121121
  Receipt Date: 20121129
  Transmission Date: 20140127
  Serious: Yes (Hospitalization)
  Sender: FDA-Public Use
  Company Number: JPI-P-026289

PATIENT
  Age: 41 Year
  Sex: Male
  Weight: 86.18 kg

DRUGS (6)
  1. XYREM (500 MILLIGRAM/MILLILITERS, SOLUTION) (SODIUM OXYBATE) [Suspect]
     Indication: NARCOLEPSY
     Route: 048
     Dates: start: 200609
  2. XYREM (500 MILLIGRAM/MILLILITERS, SOLUTION) (SODIUM OXYBATE) [Suspect]
     Indication: SOMNOLENCE
     Route: 048
     Dates: start: 200609
  3. DESVENLAFAXINE [Concomitant]
  4. FENOFIBRATE [Concomitant]
  5. PRAVASTATIN [Concomitant]
  6. METFORMIN [Concomitant]

REACTIONS (1)
  - Myocardial infarction [None]
